FAERS Safety Report 11031376 (Version 3)
Quarter: 2016Q3

REPORT INFORMATION
  Report Type: Spontaneous
  Country: US (occurrence: US)
  Receive Date: 20150415
  Receipt Date: 20160727
  Transmission Date: 20161109
  Serious: No
  Sender: FDA-Public Use
  Company Number: US-PFIZER INC-2015123550

PATIENT
  Age: 48 Year
  Sex: Female

DRUGS (9)
  1. PHENERGAN [Concomitant]
     Active Substance: PROMETHAZINE HYDROCHLORIDE
     Indication: NAUSEA
     Dosage: 25 MG, AS NEEDED EVERY 6 HOURS)
     Route: 048
  2. TESSALON [Concomitant]
     Active Substance: BENZONATATE
     Indication: COUGH
     Dosage: 100 MG, AS NEEDED (TAKE 1 CAPSULE BY MOUTH 3 (THREE) TIMES DAILY)
     Route: 048
  3. NORCO [Concomitant]
     Active Substance: ACETAMINOPHEN\HYDROCODONE BITARTRATE
     Indication: PAIN
     Dosage: 1 DF, AS NEEDED
     Route: 048
  4. PRILOSEC [Concomitant]
     Active Substance: OMEPRAZOLE MAGNESIUM
     Dosage: 40 MG, DAILY
     Route: 048
  5. NORVASC [Concomitant]
     Active Substance: AMLODIPINE BESYLATE
     Dosage: 10 MG, 1X/DAY
     Route: 048
  6. SOMA [Concomitant]
     Active Substance: CARISOPRODOL
     Dosage: 350 MG, AS NEEDED (TAKE 1 TABLET BY MOUTH 2 (TWO) TIMES DAILY)
     Route: 048
  7. MICROZIDE [Concomitant]
     Active Substance: HYDROCHLOROTHIAZIDE
     Dosage: 12.5 MG, DAILY
     Route: 048
  8. DEPO-ESTRADIOL [Suspect]
     Active Substance: ESTRADIOL CYPIONATE
     Indication: OBESITY
     Dosage: 0.3 ML, CYCLIC
     Route: 030
     Dates: start: 20160607
  9. GARCINIA CAMBOGIA COMP [Concomitant]
     Active Substance: DIETARY SUPPLEMENT
     Dosage: 200 UG, UNK
     Route: 048

REACTIONS (3)
  - Hot flush [Unknown]
  - Product use issue [Unknown]
  - Feeling hot [Unknown]

NARRATIVE: CASE EVENT DATE: 20160607
